FAERS Safety Report 6730954-X (Version None)
Quarter: 2010Q2

REPORT INFORMATION
  Report Type: 
  Country: None (occurrence: None)
  Receive Date: 20100518
  Receipt Date: 20100503
  Transmission Date: 20101027
  Serious: Yes (Hospitalization)
  Sender: FDA-Public Use
  Company Number: FR-BAYER-201024721GPV

PATIENT
  Age: 68 Year
  Sex: Male

DRUGS (6)
  1. ULTRAVIST 370 [Suspect]
     Indication: COMPUTERISED TOMOGRAM
     Route: 014
     Dates: start: 20091202, end: 20091202
  2. PLAVIX [Suspect]
     Dosage: TOTAL DAILY DOSE: 75 MG
     Route: 048
     Dates: start: 20081101
  3. KENACORT [Suspect]
     Dosage: AS USED: 40 MG/ML  UNIT DOSE: 2 ML
     Route: 014
     Dates: start: 20091204, end: 20091204
  4. ACETAMINOPHEN [Concomitant]
     Indication: PAIN IN EXTREMITY
  5. PERFALGAN [Concomitant]
     Indication: ARTHROPATHY
  6. PYOSTACINE [Concomitant]
     Indication: ARTHROPATHY

REACTIONS (1)
  - HAEMARTHROSIS [None]
